FAERS Safety Report 20819701 (Version 1)
Quarter: 2022Q2

REPORT INFORMATION
  Report Type: Report from Study
  Country: IT (occurrence: IT)
  Receive Date: 20220512
  Receipt Date: 20220512
  Transmission Date: 20220721
  Serious: Yes (Hospitalization, Other)
  Sender: FDA-Public Use
  Company Number: IT-BRISTOL-MYERS SQUIBB COMPANY-BMS-2022-001231

PATIENT
  Age: 43 Year
  Sex: Female
  Weight: 83 kg

DRUGS (13)
  1. NIVOLUMAB [Suspect]
     Active Substance: NIVOLUMAB
     Indication: Prophylaxis
     Route: 042
     Dates: start: 20211214, end: 20211214
  2. IPILIMUMAB [Suspect]
     Active Substance: IPILIMUMAB
     Indication: Prophylaxis
     Route: 042
     Dates: start: 20211214, end: 20220113
  3. NIVOLUMAB\RELATLIMAB-RMBW [Suspect]
     Active Substance: NIVOLUMAB\RELATLIMAB-RMBW
  4. KEPPRA [Concomitant]
     Active Substance: LEVETIRACETAM
     Indication: Product used for unknown indication
     Dosage: 500 MILLIGRAM, BID
     Route: 065
     Dates: start: 202109
  5. KEPPRA [Concomitant]
     Active Substance: LEVETIRACETAM
     Indication: Product used for unknown indication
  6. DIAMOX SEQUELS [Concomitant]
     Active Substance: ACETAZOLAMIDE
     Indication: Product used for unknown indication
     Dosage: 1 TAB 1 TAB 1 TAB, QD
     Route: 065
     Dates: start: 202110
  7. TAVOR (LORAZEPAM) [Concomitant]
     Active Substance: LORAZEPAM
     Indication: Product used for unknown indication
     Dosage: 1 MILLIGRAM, QD
     Route: 065
     Dates: start: 202109
  8. TAVOR (LORAZEPAM) [Concomitant]
     Active Substance: LORAZEPAM
     Indication: Product used for unknown indication
  9. BEDIOL [Concomitant]
     Indication: Product used for unknown indication
     Dosage: 10 DROPS
     Route: 065
     Dates: start: 202103
  10. BEDIOL [Concomitant]
     Indication: Product used for unknown indication
  11. PREDNISONE [Concomitant]
     Active Substance: PREDNISONE
     Indication: Product used for unknown indication
     Dosage: 10 MILLIGRAM, QD
     Route: 065
     Dates: start: 20211118, end: 20220104
  12. PREDNISONE [Concomitant]
     Active Substance: PREDNISONE
     Indication: Product used for unknown indication
     Dosage: RESTARTED AT AN UNKNOWN DOSE
  13. YOVIS [Concomitant]
     Indication: Product used for unknown indication
     Dosage: 1 SACHET DAILY
     Route: 065
     Dates: start: 2021, end: 202112

REACTIONS (2)
  - Autoimmune hepatitis [Recovering/Resolving]
  - Transaminases increased [Recovering/Resolving]

NARRATIVE: CASE EVENT DATE: 20220104
